FAERS Safety Report 19666617 (Version 1)
Quarter: 2021Q3

REPORT INFORMATION
  Report Type: Spontaneous
  Country: US (occurrence: US)
  Receive Date: 20210806
  Receipt Date: 20210806
  Transmission Date: 20211014
  Serious: No
  Sender: FDA-Public Use
  Company Number: None

PATIENT

DRUGS (2)
  1. PITOCIN [Suspect]
     Active Substance: OXYTOCIN
     Route: 042
  2. MAGNESIUM SULFATE IN DSW [Suspect]
     Active Substance: MAGNESIUM SULFATE
     Route: 042

REACTIONS (2)
  - Product packaging confusion [None]
  - Wrong product administered [None]
